FAERS Safety Report 6636091-7 (Version None)
Quarter: 2010Q1

REPORT INFORMATION
  Report Type: 
  Country: None (occurrence: None)
  Receive Date: 20100225
  Receipt Date: 20081212
  Transmission Date: 20100710
  Serious: Yes (Hospitalization)
  Sender: FDA-Public Use
  Company Number: US-JNJFOC-20081200238

PATIENT
  Age: 40 Year
  Sex: Female

DRUGS (5)
  1. IBUPROFEN [Suspect]
     Indication: DRUG USE FOR UNKNOWN INDICATION
     Dosage: 1 DOSE(S), 1 IN 1 TOTAL, ORAL
     Route: 048
     Dates: start: 20081113, end: 20081113
  2. MAALOX FAST BLOCKER [Suspect]
     Indication: GASTROOESOPHAGEAL REFLUX DISEASE
     Dosage: 40 ML, IN 1 DAY, ORAL
     Route: 048
     Dates: start: 20081112, end: 20081113
  3. OMEPRAZOLE (OMEPRAZOLE) UNSPECIFIED [Suspect]
     Indication: GASTROOESOPHAGEAL REFLUX DISEASE
     Dosage: 1 DOSE(S), 1 IN 1 DAY, ORAL
     Route: 048
     Dates: start: 20081112, end: 20081113
  4. XANAX [Suspect]
     Indication: INSOMNIA
     Dosage: 1 DOSE(S), 1 IN 1 TOTAL, ORAL
     Route: 048
     Dates: start: 20081113, end: 20081113
  5. ORAL CONTRACEPTIVE NOS (ORAL CONTRACEPTIVE NOS) [Concomitant]

REACTIONS (1)
  - HEPATITIS B [None]
